FAERS Safety Report 18480355 (Version 1)
Quarter: 2020Q4

REPORT INFORMATION
  Report Type: Spontaneous
  Country: BE (occurrence: BE)
  Receive Date: 20201109
  Receipt Date: 20201109
  Transmission Date: 20210114
  Serious: Yes (Other)
  Sender: FDA-Public Use
  Company Number: BE-BRISTOL-MYERS SQUIBB COMPANY-BMS-2020-093783

PATIENT
  Sex: Female

DRUGS (1)
  1. HYDREA [Suspect]
     Active Substance: HYDROXYUREA
     Indication: ESSENTIAL THROMBOCYTHAEMIA
     Dosage: 1 DOSAGE FORM/DAY TO 3 DOSAGE FORM/WEEK
     Route: 065
     Dates: start: 2011

REACTIONS (11)
  - Blood uric acid increased [Unknown]
  - Diarrhoea [Unknown]
  - Liver disorder [Unknown]
  - Blood creatinine increased [Unknown]
  - Hypothyroidism [Unknown]
  - Abdominal pain upper [Unknown]
  - Alopecia [Unknown]
  - Blood urea increased [Unknown]
  - Gastritis [Unknown]
  - Mesenteric vein thrombosis [Unknown]
  - Cutaneous vasculitis [Unknown]
